FAERS Safety Report 5890339-5 (Version None)
Quarter: 2008Q3

REPORT INFORMATION
  Report Type: 
  Country: None (occurrence: None)
  Receive Date: 20080918
  Receipt Date: 20080908
  Transmission Date: 20090109
  Serious: Yes (Hospitalization)
  Sender: FDA-Public Use
  Company Number: 2008BI020912

PATIENT
  Age: 53 Year
  Sex: Female

DRUGS (7)
  1. AVONEX [Suspect]
     Indication: MULTIPLE SCLEROSIS
     Dosage: 30 UG; QW; IM, 30 UG; QW; IM
     Route: 030
     Dates: start: 20020201, end: 20030801
  2. AVONEX [Suspect]
     Indication: MULTIPLE SCLEROSIS
     Dosage: 30 UG; QW; IM, 30 UG; QW; IM
     Route: 030
     Dates: start: 20030801
  3. KEPRA (CON.) [Concomitant]
  4. PAROXETINE (CON.) [Concomitant]
  5. CALCIUM AND VITAMIN D (CON.) [Concomitant]
  6. FAMOTIDINE (CON.) [Concomitant]
  7. DILANTIN (CON.) [Concomitant]

REACTIONS (6)
  - CONVULSION [None]
  - DRUG SCREEN POSITIVE [None]
  - ENCEPHALOPATHY [None]
  - PYREXIA [None]
  - RESPIRATORY FAILURE [None]
  - STATUS EPILEPTICUS [None]
